FAERS Safety Report 5105522-6 (Version None)
Quarter: 2006Q3

REPORT INFORMATION
  Report Type: 
  Country: None (occurrence: None)
  Receive Date: 20060915
  Receipt Date: 20060905
  Transmission Date: 20061208
  Serious: Yes (Death, Hospitalization)
  Sender: FDA-Public Use
  Company Number: US-JNJFOC-20060902012

PATIENT
  Age: 31 Year
  Sex: Female

DRUGS (4)
  1. ACETAMINOPHEN [Suspect]
  2. ACETAMINOPHEN [Suspect]
     Indication: PAIN
     Dosage: 2 TABLETS (DOSE UNKNOWN) EVERY 4 HOURS AROUND THE CLOCK
  3. ASPIRIN [Suspect]
     Indication: DRUG USE FOR UNKNOWN INDICATION
  4. ETHANOL [Suspect]
     Indication: DRUG USE FOR UNKNOWN INDICATION

REACTIONS (11)
  - ABDOMINAL PAIN [None]
  - BLOOD CALCIUM DECREASED [None]
  - BLOOD PHOSPHORUS INCREASED [None]
  - DRUG TOXICITY [None]
  - HAEMATEMESIS [None]
  - HEPATIC FUNCTION ABNORMAL [None]
  - HEPATITIS [None]
  - HYPOTENSION [None]
  - INTENTIONAL DRUG MISUSE [None]
  - METABOLIC ACIDOSIS [None]
  - TACHYCARDIA [None]
